FAERS Safety Report 5797073-0 (Version None)
Quarter: 2008Q3

REPORT INFORMATION
  Report Type: 
  Country: None (occurrence: None)
  Receive Date: 20080701
  Receipt Date: 20080625
  Transmission Date: 20090109
  Serious: Yes (Death, Hospitalization)
  Sender: FDA-Public Use
  Company Number: DE-ABBOTT-08P-062-0459352-00

PATIENT
  Sex: Female

DRUGS (1)
  1. HUMIRA [Suspect]
     Indication: RHEUMATOID ARTHRITIS
     Route: 058
     Dates: start: 20061101

REACTIONS (12)
  - ABDOMINAL DISTENSION [None]
  - CARDIAC FAILURE [None]
  - CONFUSIONAL STATE [None]
  - DYSPNOEA [None]
  - GENERAL PHYSICAL HEALTH DETERIORATION [None]
  - INFLAMMATION [None]
  - OXYGEN SATURATION DECREASED [None]
  - PALLOR [None]
  - PULMONARY OEDEMA [None]
  - SOMNOLENCE [None]
  - SUDDEN CARDIAC DEATH [None]
  - TACHYCARDIA [None]
